FAERS Safety Report 15705361 (Version 1)
Quarter: 2018Q4

REPORT INFORMATION
  Report Type: Spontaneous
  Country: JP (occurrence: JP)
  Receive Date: 20181210
  Receipt Date: 20181210
  Transmission Date: 20190205
  Serious: Yes (Other)
  Sender: FDA-Public Use
  Company Number: JP-TEVA-2018-JP-984950

PATIENT
  Age: 80 Year
  Sex: Female

DRUGS (1)
  1. RISEDRONATE SODIUM-BP [Suspect]
     Active Substance: RISEDRONATE SODIUM
     Indication: PRODUCT USED FOR UNKNOWN INDICATION
     Dosage: FREQUENCY NOT SPECIFIED (REPORTED AS ONE TIME)
     Route: 065

REACTIONS (1)
  - Wrist fracture [Unknown]
